FAERS Safety Report 4868883-9 (Version None)
Quarter: 2005Q4

REPORT INFORMATION
  Report Type: 
  Country: None (occurrence: None)
  Receive Date: 20051229
  Receipt Date: 20050829
  Transmission Date: 20060501
  Serious: Yes (Death, Hospitalization, Other)
  Sender: FDA-Public Use
  Company Number: US-MERCK-0508USA05051

PATIENT
  Age: 63 Year
  Sex: Female

DRUGS (13)
  1. VIOXX [Suspect]
     Route: 048
     Dates: start: 19990101, end: 20030801
  2. VIOXX [Suspect]
     Route: 048
     Dates: start: 19990101, end: 20030801
  3. PRILOSEC [Concomitant]
     Route: 065
  4. PAXIL [Concomitant]
     Route: 065
  5. FOLIC ACID [Concomitant]
     Route: 065
  6. METHOTREXATE [Concomitant]
     Route: 065
  7. RELAFEN [Concomitant]
     Route: 065
  8. CYCLOBENZAPRINE HYDROCHLORIDE [Concomitant]
     Route: 065
  9. ATIVAN [Concomitant]
     Route: 065
  10. DARVOCET-N 100 [Concomitant]
     Route: 065
  11. SEREVENT [Concomitant]
     Route: 065
  12. FOSAMAX [Concomitant]
     Route: 065
  13. PREMARIN [Concomitant]
     Route: 065

REACTIONS (24)
  - ACUTE RESPIRATORY DISTRESS SYNDROME [None]
  - ANAEMIA [None]
  - BUNDLE BRANCH BLOCK LEFT [None]
  - CARDIAC FAILURE [None]
  - CARDIAC FAILURE CONGESTIVE [None]
  - CHRONIC OBSTRUCTIVE PULMONARY DISEASE [None]
  - DYSPNOEA [None]
  - HEADACHE [None]
  - HUMERUS FRACTURE [None]
  - HYPOTENSION [None]
  - INTERSTITIAL LUNG DISEASE [None]
  - INTESTINAL ISCHAEMIA [None]
  - MULTI-ORGAN FAILURE [None]
  - MYOCARDIAL INFARCTION [None]
  - OSTEOPENIA [None]
  - PERIPHERAL EMBOLISM [None]
  - PNEUMONIA [None]
  - PYREXIA [None]
  - RENAL FAILURE ACUTE [None]
  - RESPIRATORY FAILURE [None]
  - RHEUMATOID ARTHRITIS [None]
  - SEPTIC SHOCK [None]
  - VENTRICULAR INTERNAL DIAMETER ABNORMAL [None]
  - WHEEZING [None]
